FAERS Safety Report 6470625-0 (Version None)
Quarter: 2009Q4

REPORT INFORMATION
  Report Type: 
  Country: None (occurrence: None)
  Receive Date: 20091203
  Receipt Date: 20090313
  Transmission Date: 20100525
  Serious: No
  Sender: FDA-Public Use
  Company Number: US-ABBOTT-09P-163-0562881-00

PATIENT
  Sex: Female
  Weight: 106.69 kg

DRUGS (4)
  1. MERIDIA [Suspect]
     Indication: OBESITY
     Route: 048
     Dates: start: 20071201, end: 20080101
  2. MERIDIA [Suspect]
     Route: 048
     Dates: start: 20080201, end: 20080401
  3. MERIDIA [Suspect]
     Route: 048
     Dates: start: 20090301
  4. SYNTHROID [Concomitant]
     Indication: HYPOTHYROIDISM
     Route: 048

REACTIONS (1)
  - DEVICE DISLOCATION [None]
